FAERS Safety Report 6568734-0 (Version None)
Quarter: 2010Q1

REPORT INFORMATION
  Report Type: 
  Country: None (occurrence: None)
  Receive Date: 20100203
  Receipt Date: 20100126
  Transmission Date: 20100710
  Serious: Yes (Death)
  Sender: FDA-Public Use
  Company Number: IT-MILLENNIUM PHARMACEUTICALS, INC.-2010-00973

PATIENT

DRUGS (5)
  1. VELCADE [Suspect]
     Indication: MULTIPLE MYELOMA
     Dosage: 2 MG, CYCLIC
     Route: 042
     Dates: start: 20091124, end: 20091231
  2. ALKERAN [Concomitant]
     Indication: MULTIPLE MYELOMA
     Dosage: UNK
     Route: 048
     Dates: start: 20091217
  3. DELTACORTENE [Concomitant]
     Indication: MULTIPLE MYELOMA
     Dosage: UNK
     Route: 048
     Dates: start: 20091217
  4. TINSET [Concomitant]
     Indication: ERYTHEMA
     Dosage: UNK
  5. LANSOPRAZOLE [Concomitant]

REACTIONS (2)
  - CARDIAC ARREST [None]
  - SUDDEN CARDIAC DEATH [None]
